FAERS Safety Report 15167585 (Version 1)
Quarter: 2018Q3

REPORT INFORMATION
  Report Type: Spontaneous
  Country: TR (occurrence: TR)
  Receive Date: 20180719
  Receipt Date: 20180719
  Transmission Date: 20181010
  Serious: No
  Sender: FDA-Public Use
  Company Number: TR-ELI_LILLY_AND_COMPANY-TR201807007194

PATIENT
  Age: 47 Year
  Sex: Male

DRUGS (3)
  1. CIALIS [Suspect]
     Active Substance: TADALAFIL
     Indication: PRODUCT USED FOR UNKNOWN INDICATION
     Dosage: FROM TIME TO TIME
     Route: 065
     Dates: start: 2016
  2. VIAGRA [Suspect]
     Active Substance: SILDENAFIL CITRATE
     Indication: PRODUCT USED FOR UNKNOWN INDICATION
     Dosage: FROM TIME TO TIME
     Route: 065
     Dates: start: 2016
  3. EGIRA [Suspect]
     Active Substance: SILDENAFIL CITRATE
     Indication: PRODUCT USED FOR UNKNOWN INDICATION
     Dosage: FROM TIME TO TIME
     Route: 065
     Dates: start: 2016

REACTIONS (2)
  - Myopia [Unknown]
  - Visual impairment [Unknown]

NARRATIVE: CASE EVENT DATE: 201801
